FAERS Safety Report 5586039-1 (Version None)
Quarter: 2007Q4

REPORT INFORMATION
  Report Type: 
  Country: None (occurrence: None)
  Receive Date: 20071205
  Receipt Date: 20070126
  Transmission Date: 20080405
  Serious: Yes (Hospitalization)
  Sender: FDA-Public Use
  Company Number: HQWYE896130JAN07

PATIENT
  Age: 29 Year
  Sex: Female

DRUGS (3)
  1. EFFEXOR XR [Suspect]
     Indication: ANXIETY
     Dosage: 150 MG 1 X PER 1 DAY
     Dates: start: 20070101
  2. KLONOPIN [Suspect]
     Indication: ANXIETY
     Dosage: UNKNOWN DOSE, TAPERED OFF AGAIN
     Dates: end: 20070101
  3. KLONOPIN [Suspect]
     Indication: ANXIETY
     Dosage: UNKNOWN DOSE, TAPERED OFF AGAIN
     Dates: start: 20070101, end: 20070201

REACTIONS (2)
  - CRYING [None]
  - SUICIDAL IDEATION [None]
